FAERS Safety Report 4444446-4 (Version None)
Quarter: 2004Q3

REPORT INFORMATION
  Report Type: 
  Country: None (occurrence: None)
  Receive Date: 20040902
  Receipt Date: 20040811
  Transmission Date: 20050211
  Serious: Yes (Other)
  Sender: FDA-Public Use
  Company Number: USA040875369

PATIENT
  Age: 75 Year
  Sex: Female

DRUGS (5)
  1. FORTEO [Suspect]
     Indication: ARTHRITIS
     Dates: start: 20020101
  2. HUMIRA [Concomitant]
  3. FOSAMAX [Concomitant]
  4. CELEBREX [Concomitant]
  5. ENBREL [Concomitant]

REACTIONS (6)
  - DRUG INTOLERANCE [None]
  - HIP FRACTURE [None]
  - PATHOLOGICAL FRACTURE [None]
  - PHARMACEUTICAL PRODUCT COMPLAINT [None]
  - POST PROCEDURAL PAIN [None]
  - RECTAL HAEMORRHAGE [None]
